FAERS Safety Report 8351423-X (Version None)
Quarter: 2012Q2

REPORT INFORMATION
  Report Type: 
  Country: None (occurrence: None)
  Receive Date: 20120510
  Receipt Date: 20120503
  Transmission Date: 20120825
  Serious: Yes (Other)
  Sender: FDA-Public Use
  Company Number: US-RB-037361-12

PATIENT
  Age: 57 Year
  Sex: Male

DRUGS (6)
  1. GABAPENTIN [Concomitant]
     Indication: NERVOUS SYSTEM DISORDER
     Dosage: UNKNOWN
     Route: 065
  2. SIMVASTATIN [Concomitant]
     Indication: BLOOD CHOLESTEROL INCREASED
     Dosage: UNKNOWN
     Route: 065
  3. WELLBUTRIN [Concomitant]
     Indication: DEPRESSION
     Dosage: UNKNOWN
     Route: 065
  4. SUBOXONE [Suspect]
     Indication: DRUG DEPENDENCE
     Dosage: UNIT DOSE 8 MG AND 2 MG
     Route: 060
     Dates: start: 20080101, end: 20120201
  5. MIRTAZAPINE [Concomitant]
     Indication: SLEEP DISORDER
     Dosage: UNKNOWN
     Route: 065
  6. PREVACID [Concomitant]
     Indication: BARRETT'S OESOPHAGUS
     Dosage: UNKNOWN
     Route: 065

REACTIONS (5)
  - ABDOMINAL PAIN [None]
  - PANCREATIC DISORDER [None]
  - NAUSEA [None]
  - DIARRHOEA [None]
  - INTRADUCTAL PAPILLARY MUCINOUS NEOPLASM [None]
